FAERS Safety Report 8564345-6 (Version None)
Quarter: 2012Q3

REPORT INFORMATION
  Report Type: 
  Country: None (occurrence: None)
  Receive Date: 20120723
  Receipt Date: 20120713
  Transmission Date: 20120928
  Serious: Yes (Other)
  Sender: FDA-Public Use
  Company Number: DKLU1076563

PATIENT
  Age: 51 Year
  Sex: Male

DRUGS (14)
  1. SABRIL [Suspect]
     Indication: COMPLEX PARTIAL SEIZURES
     Dosage: SEE IMAGE
     Route: 048
     Dates: start: 20101001
  2. SABRIL [Suspect]
     Indication: TEMPORAL LOBE EPILEPSY
     Dosage: SEE IMAGE
     Route: 048
     Dates: start: 20101001
  3. SABRIL [Suspect]
     Indication: COMPLEX PARTIAL SEIZURES
     Dosage: SEE IMAGE
     Route: 048
     Dates: start: 20120712
  4. SABRIL [Suspect]
     Indication: TEMPORAL LOBE EPILEPSY
     Dosage: SEE IMAGE
     Route: 048
     Dates: start: 20120712
  5. SABRIL [Suspect]
     Indication: COMPLEX PARTIAL SEIZURES
     Dosage: SEE IMAGE
     Route: 048
     Dates: start: 20100901
  6. SABRIL [Suspect]
     Indication: TEMPORAL LOBE EPILEPSY
     Dosage: SEE IMAGE
     Route: 048
     Dates: start: 20100901
  7. SABRIL [Suspect]
     Indication: COMPLEX PARTIAL SEIZURES
     Dosage: SEE IMAGE
     Route: 048
     Dates: start: 20100401
  8. SABRIL [Suspect]
     Indication: TEMPORAL LOBE EPILEPSY
     Dosage: SEE IMAGE
     Route: 048
     Dates: start: 20100401
  9. SABRIL [Suspect]
     Indication: COMPLEX PARTIAL SEIZURES
     Dosage: SEE IMAGE
     Route: 048
     Dates: start: 20101101
  10. SABRIL [Suspect]
     Indication: TEMPORAL LOBE EPILEPSY
     Dosage: SEE IMAGE
     Route: 048
     Dates: start: 20101101
  11. SABRIL [Suspect]
     Indication: COMPLEX PARTIAL SEIZURES
     Dosage: SEE IMAGE
     Route: 048
     Dates: start: 20120112
  12. SABRIL [Suspect]
     Indication: TEMPORAL LOBE EPILEPSY
     Dosage: SEE IMAGE
     Route: 048
     Dates: start: 20120112
  13. LAMICTAL [Concomitant]
  14. KEPPRA [Concomitant]

REACTIONS (3)
  - RETINAL INJURY [None]
  - VISUAL FIELD DEFECT [None]
  - OPTIC NERVE INJURY [None]
